FAERS Safety Report 9605741 (Version 1)
Quarter: 2013Q4

REPORT INFORMATION
  Report Type: Spontaneous
  Country: GB (occurrence: GB)
  Receive Date: 20131008
  Receipt Date: 20131008
  Transmission Date: 20140711
  Serious: Yes (Other)
  Sender: FDA-Public Use
  Company Number: GB-TAKEDA-2013TJP001505

PATIENT
  Sex: 0

DRUGS (15)
  1. LANSOPRAZOLE [Suspect]
     Indication: PRODUCT USED FOR UNKNOWN INDICATION
  2. TOPAMAX [Suspect]
     Indication: PRODUCT USED FOR UNKNOWN INDICATION
     Dosage: 75 MG, BID
     Route: 048
  3. TOPAMAX [Suspect]
     Dosage: 50 MG, BID
     Route: 048
  4. TOPAMAX [Suspect]
     Dosage: 25 MG, BID
  5. TOPAMAX [Suspect]
     Dosage: 25 MG, QD
  6. ALFACALCIDOL [Concomitant]
  7. ATORVASTATIN [Concomitant]
  8. BISOPROLOL [Concomitant]
  9. CITALOPRAM [Concomitant]
  10. FUROSEMIDE [Concomitant]
  11. GLUCOPHAGE [Concomitant]
  12. LEVOTHYROXINE [Concomitant]
  13. RAMIPRIL [Concomitant]
  14. RIVAROXABAN [Concomitant]
  15. SITAGLIPTIN [Concomitant]

REACTIONS (13)
  - Atrial fibrillation [Unknown]
  - Hypertension [Unknown]
  - Diarrhoea [Unknown]
  - Dyspnoea [Unknown]
  - Hypoaesthesia [Unknown]
  - Paraesthesia [Unknown]
  - Candida infection [Unknown]
  - Dry mouth [Unknown]
  - Urticaria [Unknown]
  - Myalgia [Unknown]
  - Gastric disorder [Unknown]
  - Poor quality drug administered [Unknown]
  - Somnolence [Unknown]
